FAERS Safety Report 5693610-5 (Version None)
Quarter: 2008Q2

REPORT INFORMATION
  Report Type: 
  Country: None (occurrence: None)
  Receive Date: 20080328
  Receipt Date: 20080109
  Transmission Date: 20081010
  Serious: Yes (Other)
  Sender: FDA-Public Use
  Company Number: US-WYE-H02104008

PATIENT
  Age: 79 Year

DRUGS (1)
  1. PROTONIX [Suspect]
     Indication: DYSPEPSIA
     Dosage: 40 MG

REACTIONS (2)
  - UNEVALUABLE EVENT [None]
  - VERTIGO [None]
